FAERS Safety Report 8581759-9 (Version None)
Quarter: 2012Q3

REPORT INFORMATION
  Report Type: 
  Country: None (occurrence: None)
  Receive Date: 20120809
  Receipt Date: 20120731
  Transmission Date: 20120928
  Serious: Yes (Other)
  Sender: FDA-Public Use
  Company Number: CA-JNJFOC-20120800528

PATIENT
  Sex: Female
  Weight: 81 kg

DRUGS (4)
  1. TYLENOL [Concomitant]
     Route: 048
  2. HYDROCORTISONE [Concomitant]
     Route: 042
  3. REMICADE [Suspect]
     Indication: RHEUMATOID ARTHRITIS
     Route: 042
     Dates: start: 20080402
  4. BENADRYL [Concomitant]
     Route: 048

REACTIONS (1)
  - TONGUE DISORDER [None]
